FAERS Safety Report 6607632-0 (Version None)
Quarter: 2010Q1

REPORT INFORMATION
  Report Type: 
  Country: None (occurrence: None)
  Receive Date: 20100223
  Receipt Date: 20100212
  Transmission Date: 20100710
  Serious: Yes (Other)
  Sender: FDA-Public Use
  Company Number: TRP_06795_2010

PATIENT
  Sex: Male

DRUGS (3)
  1. RIBASPHERE [Suspect]
     Indication: HEPATITIS C
     Dosage: 1200 MG, DAILY (HELD FOR 7 DAYS) ORAL
     Route: 048
     Dates: start: 20090805
  2. PEGAYS /01557901/ (NOT SPECIFIED) [Suspect]
     Indication: HEPATITIS C
     Dosage: 180 ?G 1X/WEEK, (HELD FOR 7 DAYS) SUBCUTANEOUS
     Route: 058
     Dates: start: 20090805
  3. NEXIUM [Concomitant]

REACTIONS (10)
  - ABDOMINAL PAIN UPPER [None]
  - ANXIETY [None]
  - CHEST DISCOMFORT [None]
  - CONSTIPATION [None]
  - DRY SKIN [None]
  - DYSPNOEA [None]
  - FOOD POISONING [None]
  - LETHARGY [None]
  - PEPTIC ULCER [None]
  - SINUS CONGESTION [None]
